FAERS Safety Report 5054487-4 (Version None)
Quarter: 2006Q3

REPORT INFORMATION
  Report Type: 
  Country: None (occurrence: None)
  Receive Date: 20060714
  Receipt Date: 20060703
  Transmission Date: 20061208
  Serious: Yes (Life-Threatening)
  Sender: FDA-Public Use
  Company Number: EM2006-0364

PATIENT
  Age: 44 Year
  Sex: Male
  Weight: 86 kg

DRUGS (5)
  1. MACROLIN [Suspect]
     Indication: HIV INFECTION
     Dosage: SUBCUTAN.
     Route: 058
     Dates: start: 20060626, end: 20060629
  2. KALETRA            (POTASSIUM CHLORIDE) [Concomitant]
  3. COMBIVIR [Concomitant]
  4. VIREAD [Concomitant]
  5. ACETAMINOPHEN [Concomitant]

REACTIONS (1)
  - ANAPHYLACTIC REACTION [None]
